FAERS Safety Report 6073877-4 (Version None)
Quarter: 2009Q1

REPORT INFORMATION
  Report Type: 
  Country: None (occurrence: None)
  Receive Date: 20090211
  Receipt Date: 20090130
  Transmission Date: 20090719
  Serious: Yes (Other)
  Sender: FDA-Public Use
  Company Number: AU-PFIZER INC-2009165162

PATIENT

DRUGS (1)
  1. VFEND [Suspect]
     Route: 048

REACTIONS (3)
  - RETINAL HAEMORRHAGE [None]
  - THROMBOSIS [None]
  - VISUAL ACUITY REDUCED [None]
